FAERS Safety Report 23818042 (Version 2)
Quarter: 2024Q2

REPORT INFORMATION
  Report Type: Spontaneous
  Country: PT (occurrence: PT)
  Receive Date: 20240506
  Receipt Date: 20240510
  Transmission Date: 20240716
  Serious: Yes (Hospitalization)
  Sender: FDA-Public Use
  Company Number: PT-PHARMIS-2024000133

PATIENT
  Age: 34 Year
  Sex: Female

DRUGS (1)
  1. HYDROCORTISONE [Suspect]
     Active Substance: HYDROCORTISONE
     Indication: Afterbirth pain
     Dosage: UNK
     Route: 042

REACTIONS (1)
  - Anaphylactic reaction [Unknown]
